FAERS Safety Report 24056981 (Version 1)
Quarter: 2024Q3

REPORT INFORMATION
  Report Type: Spontaneous
  Country: None (occurrence: CZ)
  Receive Date: 20240706
  Receipt Date: 20240706
  Transmission Date: 20241017
  Serious: Yes (Other)
  Sender: TEVA
  Company Number: CZ-TEVA-VS-3215460

PATIENT
  Age: 63 Year
  Sex: Female

DRUGS (2)
  1. PACLITAXEL [Suspect]
     Active Substance: PACLITAXEL
     Indication: Metastases to abdominal cavity
     Dosage: 8 CYCLES IN TOTAL UNTIL FEBRUARY 2022
     Route: 065
     Dates: end: 202202
  2. CARBOPLATIN [Suspect]
     Active Substance: CARBOPLATIN
     Indication: Metastases to lung
     Dosage: 8 CYCLES IN TOTAL UNTIL FEBRUARY 2022
     Route: 065
     Dates: end: 202202

REACTIONS (2)
  - Polyneuropathy [Recovered/Resolved]
  - Therapeutic response decreased [Unknown]
